FAERS Safety Report 7511946-X (Version None)
Quarter: 2011Q2

REPORT INFORMATION
  Report Type: 
  Country: None (occurrence: None)
  Receive Date: 20110519
  Receipt Date: 20110506
  Transmission Date: 20111010
  Serious: Yes (Hospitalization)
  Sender: FDA-Public Use
  Company Number: 1000009230

PATIENT
  Age: 82 Year
  Sex: Female

DRUGS (9)
  1. MEMANTINE [Suspect]
     Indication: DEMENTIA ALZHEIMER'S TYPE
     Dosage: 5 MG (5 MG, 1 IN 1 D),ORAL
     Route: 048
     Dates: start: 20090911, end: 20090921
  2. BI EUGLUCON(METFORMIN,  GLIBENCLAMIDE) (TABLETS) (METFORMIN, GLIBENCLA [Concomitant]
  3. CARDIOASPIRIN (ACETYLSALICYLIC ACID)(TABLETS)(ACETYLSALICYLIC ACID) [Concomitant]
  4. LASIX (FUROSEMIDE)(TABLETS)(FUROSEMIDE) [Concomitant]
  5. EXELON (RIVASTIGMINE)(POULTICE OR PATCH)(RIVASTIGMINE) [Concomitant]
  6. DIFFUMAL (THEOPHYLLINE) (TABLETS) (THEOPHYLLINE) [Concomitant]
  7. ZYLORIC (ALLOPURINOL) (TABLETS) (ALLOPURINOL) [Concomitant]
  8. ZYPREXA (OLANZAPINE)(TABLETS)(OLANZAPINE) [Concomitant]
  9. ZOLOFT (SERTRALINE) (TABLETS) (SERTRALINE) [Concomitant]

REACTIONS (2)
  - RESPIRATORY FAILURE [None]
  - HYPERCAPNIA [None]
